FAERS Safety Report 13011102 (Version 1)
Quarter: 2016Q4

REPORT INFORMATION
  Report Type: Spontaneous
  Country: IN (occurrence: IN)
  Receive Date: 20161208
  Receipt Date: 20161208
  Transmission Date: 20170207
  Serious: Yes (Other)
  Sender: FDA-Public Use
  Company Number: IN-ASTRAZENECA-2016SF29362

PATIENT
  Sex: Female

DRUGS (3)
  1. B COMPLEX VITAMIN [Concomitant]
     Indication: BREAST CANCER FEMALE
     Route: 048
  2. UDILIV [Concomitant]
     Indication: BREAST CANCER FEMALE
     Route: 048
  3. FASLODEX [Suspect]
     Active Substance: FULVESTRANT
     Indication: BREAST CANCER FEMALE
     Dosage: 500 MG, DOSING UNKNOWN
     Route: 030
     Dates: start: 20161004

REACTIONS (3)
  - Peripheral swelling [Not Recovered/Not Resolved]
  - Neck pain [Not Recovered/Not Resolved]
  - Diarrhoea [Recovered/Resolved]

NARRATIVE: CASE EVENT DATE: 20161108
